FAERS Safety Report 20876974 (Version 1)
Quarter: 2022Q2

REPORT INFORMATION
  Report Type: Spontaneous
  Country: US (occurrence: US)
  Receive Date: 20220526
  Receipt Date: 20220526
  Transmission Date: 20220721
  Serious: No
  Sender: FDA-Public Use
  Company Number: US-PFIZER INC-202200730285

PATIENT
  Sex: Male

DRUGS (4)
  1. PAXLOVID [Suspect]
     Active Substance: NIRMATRELVIR\RITONAVIR
     Indication: COVID-19 treatment
     Dosage: UNK
     Dates: start: 20220518
  2. ZINC [Concomitant]
     Active Substance: ZINC
     Dosage: UNK
  3. MAGNESIUM [Concomitant]
     Active Substance: MAGNESIUM
     Dosage: UNK
  4. ASPIRIN [Concomitant]
     Active Substance: ASPIRIN
     Indication: Cardiac disorder
     Dosage: UNK

REACTIONS (7)
  - Dysgeusia [Unknown]
  - Product taste abnormal [Unknown]
  - Malaise [Unknown]
  - Dry mouth [Unknown]
  - Headache [Unknown]
  - Hypoaesthesia oral [Unknown]
  - Pyrexia [Unknown]

NARRATIVE: CASE EVENT DATE: 20220518
